FAERS Safety Report 9842254 (Version 2)
Quarter: 2014Q1

REPORT INFORMATION
  Report Type: Spontaneous
  Country: JP (occurrence: JP)
  Receive Date: 20140124
  Receipt Date: 20140213
  Transmission Date: 20141002
  Serious: No
  Sender: FDA-Public Use
  Company Number: PHHY2014JP006896

PATIENT
  Sex: 0

DRUGS (1)
  1. NEORAL [Suspect]
     Indication: UVEITIS
     Route: 048

REACTIONS (3)
  - Oral administration complication [Unknown]
  - Drug administration error [Unknown]
  - Mental disorder [Recovering/Resolving]
